FAERS Safety Report 16985167 (Version 1)
Quarter: 2019Q4

REPORT INFORMATION
  Report Type: Spontaneous
  Country: US (occurrence: US)
  Receive Date: 20191101
  Receipt Date: 20191101
  Transmission Date: 20200122
  Serious: Yes (Other)
  Sender: FDA-Public Use
  Company Number: US-BAUSCH-BL-2019-058664

PATIENT
  Age: 82 Year
  Sex: Male
  Weight: 73.55 kg

DRUGS (8)
  1. ATIVAN [Suspect]
     Active Substance: LORAZEPAM
     Indication: ANXIETY
     Route: 048
     Dates: start: 1983
  2. ATIVAN [Suspect]
     Active Substance: LORAZEPAM
     Dosage: ONE 1 MG TABLET IN THE MORNING AND ONE 1 MG TABLET IN THE EVENING
     Route: 048
     Dates: start: 20191016, end: 20191017
  3. LUMIGAN [Concomitant]
     Active Substance: BIMATOPROST
     Indication: PRODUCT USED FOR UNKNOWN INDICATION
     Route: 047
  4. ATIVAN [Suspect]
     Active Substance: LORAZEPAM
     Dosage: IN THE MORNING
     Route: 048
     Dates: start: 20191015, end: 20191015
  5. ATIVAN [Suspect]
     Active Substance: LORAZEPAM
     Dosage: ONE AND A HALF TABLETS IN THE MORNING AND ONE TABLET BY IN THE EVENING/ FOR A LONG PERIOD OF TIME
     Route: 048
  6. ATIVAN [Suspect]
     Active Substance: LORAZEPAM
     Dosage: IN THE EVENING
     Route: 048
     Dates: start: 20191015, end: 20191015
  7. ATIVAN [Suspect]
     Active Substance: LORAZEPAM
     Dosage: ONLY TOOK ONE 0.5 MG ATIVAN TABLET IN THE MORNING, DOSE REDUCED
     Route: 048
     Dates: start: 20191018
  8. AMITRIPTYLINE [Concomitant]
     Active Substance: AMITRIPTYLINE
     Indication: PRODUCT USED FOR UNKNOWN INDICATION
     Route: 048

REACTIONS (9)
  - Withdrawal syndrome [Recovering/Resolving]
  - Product quality issue [Unknown]
  - Intentional product use issue [Unknown]
  - Product availability issue [Unknown]
  - Loss of personal independence in daily activities [Recovering/Resolving]
  - Dry mouth [Recovering/Resolving]
  - Asthenia [Recovering/Resolving]
  - Nervousness [Recovering/Resolving]
  - Feeling abnormal [Recovering/Resolving]

NARRATIVE: CASE EVENT DATE: 201910
